FAERS Safety Report 8204896-7 (Version None)
Quarter: 2012Q1

REPORT INFORMATION
  Report Type: 
  Country: None (occurrence: None)
  Receive Date: 20120313
  Receipt Date: 20120307
  Transmission Date: 20120608
  Serious: Yes (Death, Other)
  Sender: FDA-Public Use
  Company Number: JP-BAXTER-2012BH007030

PATIENT
  Age: 61 Year
  Sex: Male

DRUGS (29)
  1. PIRFENIDONE [Suspect]
     Route: 048
     Dates: start: 20090624, end: 20090707
  2. PIRFENIDONE [Suspect]
     Route: 048
     Dates: start: 20101231, end: 20110124
  3. BETAMETHASONE [Suspect]
     Indication: IDIOPATHIC PULMONARY FIBROSIS
     Route: 065
     Dates: start: 20110101, end: 20110125
  4. NEORAL [Concomitant]
     Indication: IDIOPATHIC PULMONARY FIBROSIS
     Route: 048
     Dates: end: 20090609
  5. BROTIZOLAM [Concomitant]
     Indication: INSOMNIA
     Route: 048
     Dates: start: 20090616, end: 20090713
  6. MIDAZOLAM [Concomitant]
     Indication: PRODUCT USED FOR UNKNOWN INDICATION
     Route: 065
     Dates: start: 20101231, end: 20110124
  7. CYCLOPHOSPHAMIDE [Suspect]
     Indication: IDIOPATHIC PULMONARY FIBROSIS
     Route: 042
     Dates: start: 20110121, end: 20110121
  8. CYCLOPHOSPHAMIDE [Suspect]
     Route: 042
     Dates: start: 20110105, end: 20110105
  9. SANDIMMUNE [Suspect]
     Indication: IDIOPATHIC PULMONARY FIBROSIS
     Route: 065
     Dates: start: 20101231, end: 20110125
  10. PREDNISOLONE [Concomitant]
     Route: 048
     Dates: start: 20090610, end: 20100111
  11. PREDNISOLONE [Concomitant]
     Route: 048
     Dates: start: 20100112, end: 20101228
  12. AMLODIPINE [Concomitant]
     Indication: PRODUCT USED FOR UNKNOWN INDICATION
     Route: 048
     Dates: end: 20101231
  13. PREDNISOLONE [Concomitant]
     Indication: IDIOPATHIC PULMONARY FIBROSIS
     Route: 048
     Dates: end: 20090609
  14. DIPRIVAN [Concomitant]
     Indication: PRODUCT USED FOR UNKNOWN INDICATION
     Route: 065
     Dates: start: 20101231, end: 20110124
  15. PIRFENIDONE [Suspect]
     Indication: IDIOPATHIC PULMONARY FIBROSIS
     Route: 048
     Dates: start: 20090610, end: 20090623
  16. NEORAL [Concomitant]
     Route: 048
     Dates: start: 20101229, end: 20101230
  17. OMEPRAZOLE [Concomitant]
     Indication: PRODUCT USED FOR UNKNOWN INDICATION
     Route: 048
     Dates: end: 20101231
  18. OMEPRAZOLE [Concomitant]
     Route: 048
     Dates: start: 20110101, end: 20110125
  19. NOREPINEPHRINE BITARTRATE [Concomitant]
     Indication: PRODUCT USED FOR UNKNOWN INDICATION
     Route: 065
     Dates: start: 20101231, end: 20110124
  20. WARFARIN SODIUM [Concomitant]
     Indication: ATRIAL FLUTTER
     Route: 048
     Dates: start: 20091205
  21. FENTANYL [Concomitant]
     Indication: PRODUCT USED FOR UNKNOWN INDICATION
     Route: 065
     Dates: start: 20101231, end: 20110125
  22. THEOLONG [Concomitant]
     Indication: IDIOPATHIC PULMONARY FIBROSIS
     Route: 048
     Dates: end: 20101231
  23. DOPAMINE HCL [Concomitant]
     Indication: PRODUCT USED FOR UNKNOWN INDICATION
     Route: 065
     Dates: start: 20101231, end: 20110124
  24. PIRFENIDONE [Suspect]
     Route: 048
     Dates: start: 20090708, end: 20101230
  25. DAIPHEN [Concomitant]
     Indication: PROPHYLAXIS
     Route: 048
  26. ALENDRONATE SODIUM [Concomitant]
     Indication: PROPHYLAXIS
     Route: 048
     Dates: end: 20101231
  27. VALSARTAN [Concomitant]
     Indication: PRODUCT USED FOR UNKNOWN INDICATION
     Route: 048
     Dates: end: 20101231
  28. METHYLPREDNISOLONE SODIUM SUCCINATE [Concomitant]
     Indication: IDIOPATHIC PULMONARY FIBROSIS
     Route: 065
     Dates: start: 20101229, end: 20101231
  29. ELASPOL [Concomitant]
     Indication: IDIOPATHIC PULMONARY FIBROSIS
     Route: 065
     Dates: start: 20101231, end: 20110112

REACTIONS (5)
  - BRONCHOPULMONARY ASPERGILLOSIS [None]
  - INSOMNIA [None]
  - BLOOD LACTATE DEHYDROGENASE INCREASED [None]
  - GAMMA-GLUTAMYLTRANSFERASE INCREASED [None]
  - ATRIAL FLUTTER [None]
